FAERS Safety Report 9749833 (Version 2)
Quarter: 2013Q4

REPORT INFORMATION
  Report Type: Spontaneous
  Country: US (occurrence: US)
  Receive Date: 20131212
  Receipt Date: 20131223
  Transmission Date: 20140711
  Serious: No
  Sender: FDA-Public Use
  Company Number: US-PFIZER INC-2013350957

PATIENT
  Age: 62 Year
  Sex: Female

DRUGS (1)
  1. CLEOCIN [Suspect]
     Indication: ACNE
     Dosage: UNK,1X/DAY
     Route: 061

REACTIONS (1)
  - Drug ineffective [Unknown]
